FAERS Safety Report 7628139-8 (Version None)
Quarter: 2011Q3

REPORT INFORMATION
  Report Type: 
  Country: None (occurrence: None)
  Receive Date: 20110720
  Receipt Date: 20110720
  Transmission Date: 20111222
  Serious: Yes (Other)
  Sender: FDA-Public Use
  Company Number: None

PATIENT
  Sex: Female
  Weight: 58.9676 kg

DRUGS (3)
  1. LATANOPROST [Suspect]
     Dosage: 1 DROP QHS OPTHALMIC
     Route: 047
  2. LUMIGAN [Concomitant]
  3. TRAVANTAN [Concomitant]

REACTIONS (2)
  - PRODUCT SUBSTITUTION ISSUE [None]
  - HYPERSENSITIVITY [None]
